FAERS Safety Report 7809323-7 (Version None)
Quarter: 2011Q4

REPORT INFORMATION
  Report Type: 
  Country: None (occurrence: None)
  Receive Date: 20111007
  Receipt Date: 20110927
  Transmission Date: 20120403
  Serious: Yes (Hospitalization, Other)
  Sender: FDA-Public Use
  Company Number: 2010SP053353

PATIENT
  Age: 32 Year
  Sex: Female
  Weight: 81.6475 kg

DRUGS (3)
  1. PREDNISONE [Concomitant]
  2. NUVARING [Suspect]
     Indication: CONTRACEPTION
     Dosage: 1 DF;QM;VAG
     Route: 067
     Dates: start: 20041201, end: 20050401
  3. NUVARING [Suspect]
     Indication: CONTRACEPTION
     Dosage: 1 DF;QM;VAG
     Route: 067
     Dates: start: 20070116, end: 20070201

REACTIONS (20)
  - NEPHROLITHIASIS [None]
  - BILIARY COLIC [None]
  - PULMONARY EMBOLISM [None]
  - OROPHARYNGEAL PAIN [None]
  - VOMITING [None]
  - HYPERLIPIDAEMIA [None]
  - BILIARY DYSKINESIA [None]
  - MAMMOPLASTY [None]
  - CHEST PAIN [None]
  - GALLBLADDER DISORDER [None]
  - ATELECTASIS [None]
  - HAEMATOMA [None]
  - INJECTION SITE PAIN [None]
  - ABDOMINAL PAIN [None]
  - SNEEZING [None]
  - SNORING [None]
  - GASTROOESOPHAGEAL REFLUX DISEASE [None]
  - BLOOD CHOLESTEROL INCREASED [None]
  - MENTAL DISORDER [None]
  - COUGH [None]
